FAERS Safety Report 7161230-1 (Version None)
Quarter: 2010Q4

REPORT INFORMATION
  Report Type: 
  Country: None (occurrence: None)
  Receive Date: 20101201
  Receipt Date: 20101123
  Transmission Date: 20110411
  Serious: Yes (Hospitalization)
  Sender: FDA-Public Use
  Company Number: WAES 1011USA02387

PATIENT
  Age: 61 Year
  Sex: Male

DRUGS (3)
  1. TAB LAROPIPRANT (+) NIACIN [Suspect]
     Indication: HIGH DENSITY LIPOPROTEIN DECREASED
     Dosage: PO
     Route: 048
     Dates: start: 20090505, end: 20100503
  2. VYTORIN [Suspect]
     Indication: HYPERCHOLESTEROLAEMIA
     Dosage: 10-40 MG/DAILY, PO
     Route: 048
     Dates: end: 20100503
  3. TAB LAROPIPRANT (+) NIACIN UNK [Suspect]
     Indication: PRODUCT USED FOR UNKNOWN INDICATION
     Dosage: PO
     Route: 048
     Dates: start: 20090226, end: 20090504

REACTIONS (3)
  - BLOOD CREATININE INCREASED [None]
  - HEPATIC STEATOSIS [None]
  - HEPATITIS [None]
